FAERS Safety Report 5028899-9 (Version None)
Quarter: 2006Q2

REPORT INFORMATION
  Report Type: 
  Country: None (occurrence: None)
  Receive Date: 20060619
  Receipt Date: 20060605
  Transmission Date: 20061013
  Serious: Yes (Disabling, Other)
  Sender: FDA-Public Use
  Company Number: US-GLAXOSMITHKLINE-A0608134A

PATIENT
  Age: 52 Year
  Sex: Female

DRUGS (1)
  1. COREG [Suspect]
     Dosage: 25MG TWICE PER DAY
     Route: 065

REACTIONS (1)
  - DIPLOPIA [None]
